FAERS Safety Report 5318469-7 (Version None)
Quarter: 2007Q2

REPORT INFORMATION
  Report Type: 
  Country: None (occurrence: None)
  Receive Date: 20070501
  Receipt Date: 20070419
  Transmission Date: 20071010
  Serious: Yes (Hospitalization)
  Sender: FDA-Public Use
  Company Number: 16371

PATIENT
  Age: 70 Year
  Sex: Female

DRUGS (5)
  1. PACLITAXEL [Suspect]
     Indication: LUNG NEOPLASM MALIGNANT
     Dosage: 298 MG IV
     Route: 042
     Dates: start: 20070404, end: 20070404
  2. BENDROFLUMETHIAZIDE [Concomitant]
  3. ENALAPRIL [Concomitant]
  4. FELODIPINE [Concomitant]
  5. MOVICOL [Concomitant]

REACTIONS (4)
  - BRONCHOSPASM [None]
  - HYPOTENSION [None]
  - RASH [None]
  - TACHYCARDIA [None]
